FAERS Safety Report 14647198 (Version 2)
Quarter: 2018Q2

REPORT INFORMATION
  Report Type: Spontaneous
  Country: US (occurrence: US)
  Receive Date: 20180316
  Receipt Date: 20180521
  Transmission Date: 20180711
  Serious: Yes (Hospitalization)
  Sender: FDA-Public Use
  Company Number: US-PFIZER INC-2018105156

PATIENT
  Age: 65 Year
  Sex: Female

DRUGS (3)
  1. ATIVAN [Concomitant]
     Active Substance: LORAZEPAM
     Dosage: 1 MG, AS NEEDED (PRN MAX 3X DAY)
  2. EFFEXOR XR [Suspect]
     Active Substance: VENLAFAXINE HYDROCHLORIDE
     Indication: DEPRESSION
     Dosage: 150 MG, 1X/DAY
     Dates: start: 2012
  3. EFFEXOR XR [Suspect]
     Active Substance: VENLAFAXINE HYDROCHLORIDE
     Indication: ANXIETY

REACTIONS (3)
  - Paraesthesia [Recovered/Resolved]
  - Vision blurred [Not Recovered/Not Resolved]
  - Withdrawal syndrome [Not Recovered/Not Resolved]
